FAERS Safety Report 17767601 (Version 2)
Quarter: 2020Q2

REPORT INFORMATION
  Report Type: Report from Study
  Country: US (occurrence: US)
  Receive Date: 20200511
  Receipt Date: 20200624
  Transmission Date: 20200714
  Serious: No
  Sender: FDA-Public Use
  Company Number: US-JNJFOC-20200501729

PATIENT
  Age: 75 Year
  Sex: Female

DRUGS (8)
  1. IMIPRAMINE                         /00053902/ [Suspect]
     Active Substance: IMIPRAMINE
     Indication: DEPRESSION
     Route: 048
  2. SYNTHROID [Concomitant]
     Active Substance: LEVOTHYROXINE SODIUM
     Indication: HYPOTHYROIDISM
  3. ZETIA [Concomitant]
     Active Substance: EZETIMIBE
  4. SPRAVATO [Suspect]
     Active Substance: ESKETAMINE
     Indication: DEPRESSION
  5. CLONAZEPAM. [Concomitant]
     Active Substance: CLONAZEPAM
     Indication: ANXIETY
  6. PREMARIN [Concomitant]
     Active Substance: ESTROGENS, CONJUGATED
     Indication: HORMONE THERAPY
  7. ATENOLOL W/HYDROCHLOROTHIAZIDE [Concomitant]
     Active Substance: ATENOLOL\HYDROCHLOROTHIAZIDE
     Indication: HYPERTENSION
  8. SPRAVATO [Suspect]
     Active Substance: ESKETAMINE
     Dates: start: 20200430, end: 20200430

REACTIONS (3)
  - Blood pressure systolic increased [Recovered/Resolved]
  - Dissociation [Recovered/Resolved]
  - Sedation [Recovered/Resolved]

NARRATIVE: CASE EVENT DATE: 20200430
